FAERS Safety Report 7818374-8 (Version None)
Quarter: 2011Q4

REPORT INFORMATION
  Report Type: 
  Country: None (occurrence: None)
  Receive Date: 20111017
  Receipt Date: 20111013
  Transmission Date: 20120403
  Serious: Yes (Life-Threatening)
  Sender: FDA-Public Use
  Company Number: FR-ASTRAZENECA-2011SE61694

PATIENT
  Age: 75 Year
  Sex: Male

DRUGS (4)
  1. ALDACTONE [Concomitant]
  2. ATACAND [Suspect]
     Indication: CARDIAC FAILURE
     Route: 048
     Dates: start: 20110906, end: 20110909
  3. BISOPROLOL FUMARATE [Concomitant]
  4. PREVISCAN [Concomitant]

REACTIONS (2)
  - CARDIOGENIC SHOCK [None]
  - HYPOTENSION [None]
